FAERS Safety Report 25148959 (Version 2)
Quarter: 2025Q4

REPORT INFORMATION
  Report Type: Spontaneous
  Country: TR (occurrence: TR)
  Receive Date: 20250402
  Receipt Date: 20251118
  Transmission Date: 20260117
  Serious: Yes (Other)
  Sender: RANBAXY
  Company Number: TR-SUN PHARMACEUTICAL INDUSTRIES LTD-2025R1-501657

PATIENT
  Age: 25 Year
  Sex: Female

DRUGS (2)
  1. PAZOPANIB [Suspect]
     Active Substance: PAZOPANIB
     Indication: Pulmonary mass
     Dosage: 800 MILLIGRAM, QD
     Route: 065
  2. PAZOPANIB [Suspect]
     Active Substance: PAZOPANIB
     Dosage: 600 MILLIGRAM, QD
     Route: 065

REACTIONS (3)
  - Fatigue [Unknown]
  - Bradycardia [Recovered/Resolved]
  - Dizziness [Unknown]
